FAERS Safety Report 22716781 (Version 4)
Quarter: 2024Q1

REPORT INFORMATION
  Report Type: Report from Study
  Country: US (occurrence: US)
  Receive Date: 20230718
  Receipt Date: 20240104
  Transmission Date: 20240410
  Serious: Yes (Hospitalization, Other)
  Sender: FDA-Public Use
  Company Number: US-INSMED, INC.-2023-02640-US

PATIENT
  Sex: Male

DRUGS (1)
  1. ARIKAYCE [Suspect]
     Active Substance: AMIKACIN
     Indication: Mycobacterial infection
     Dosage: 590 MILLIGRAM, QD
     Route: 055
     Dates: start: 20230329, end: 2023

REACTIONS (4)
  - Oxygen therapy [Unknown]
  - Hospitalisation [Unknown]
  - Unevaluable event [Unknown]
  - Therapy interrupted [Unknown]

NARRATIVE: CASE EVENT DATE: 20230101
